FAERS Safety Report 23750807 (Version 1)
Quarter: 2024Q2

REPORT INFORMATION
  Report Type: Spontaneous
  Country: ES (occurrence: ES)
  Receive Date: 20240417
  Receipt Date: 20240417
  Transmission Date: 20240716
  Serious: Yes (Hospitalization, Other)
  Sender: FDA-Public Use
  Company Number: None

PATIENT
  Age: 80 Year
  Sex: Male

DRUGS (12)
  1. DOXORUBICIN [Suspect]
     Active Substance: DOXORUBICIN
     Indication: Hodgkin^s disease
     Dosage: 91 MG, CYCLICAL, SINCE THE 6TH CYCLE, ADJUSTMENT IS MADE DUE TO WORSENING OF THE DISEASE. LAST CYCLE
     Route: 042
     Dates: start: 20231017, end: 20231227
  2. DOXORUBICIN [Suspect]
     Active Substance: DOXORUBICIN
     Dosage: 43 MG, CYCLICAL, 2ND CYCLE ON 13/07/2023 +1 43 MILLIGRAMS (25MG/M2) UNTIL COMPLETING 5 CYCLES
     Route: 042
     Dates: start: 20230713, end: 20230921
  3. DOXORUBICIN [Suspect]
     Active Substance: DOXORUBICIN
     Dosage: 86 MG, CYCLICAL, 1ST CYCLE 15/06/2023 +1 86MILLIGRAMS (50MG/M2) NEUTROPENIA AND DETERIORATION OF REN
     Route: 042
     Dates: start: 20230615, end: 20230615
  4. CYCLOPHOSPHAMIDE [Suspect]
     Active Substance: CYCLOPHOSPHAMIDE
     Indication: Burkitt^s lymphoma stage II
     Dosage: 820 MG, CYCLICAL, 2ND CYCLE ON 13/07/2023 +1 820 MILLIGRAMS UNTIL COMPLETING 5 CYCLES
     Route: 042
     Dates: start: 20230713, end: 20230921
  5. CYCLOPHOSPHAMIDE [Suspect]
     Active Substance: CYCLOPHOSPHAMIDE
     Dosage: 1300 MG, CYCLICAL, 1ST CYCLE 15/06/2023 +1 1300 MILLIGRAMS
     Route: 042
     Dates: start: 20230615, end: 20230615
  6. CYCLOPHOSPHAMIDE [Suspect]
     Active Substance: CYCLOPHOSPHAMIDE
     Dosage: 1600 MG, CYCLICAL, SINCE THE 6TH CYCLE, ADJUSTMENT IS MADE DUE TO WORSENING OF THE DISEASE. LAST CYC
     Route: 042
     Dates: start: 20231012, end: 20231227
  7. RITUXIMAB [Suspect]
     Active Substance: RITUXIMAB
     Indication: Hodgkin^s disease
     Dosage: 682.5 MG, CYCLICAL, SINCE THE 6TH CYCLE, ADJUSTMENT IS MADE DUE TO WORSENING OF THE DISEASE. LAST CY
     Route: 042
     Dates: start: 20231017, end: 20231227
  8. RITUXIMAB [Suspect]
     Active Substance: RITUXIMAB
     Dosage: 688 MG, CYCLICAL, 2ND CYCLE ON 13/07/2023 +1 688MILLIGRAMS (400MG/TOTAL) UNTIL COMPLETING 5 CYCLES
     Route: 042
     Dates: start: 20230713, end: 20230921
  9. RITUXIMAB [Suspect]
     Active Substance: RITUXIMAB
     Dosage: 645 MG, CYCLICAL, 15/06/2023 +1 645 MILLIGRAMS (375MG/TOTAL)
     Route: 065
     Dates: start: 20230615, end: 20230615
  10. VINCRISTINE [Suspect]
     Active Substance: VINCRISTINE
     Indication: Diffuse large B-cell lymphoma stage II
     Dosage: 2 MG, CYCLICAL, SINCE THE 6TH CYCLE, ADJUSTMENT IS MADE DUE TO WORSENING OF THE DISEASE. LAST CYCLE
     Route: 042
     Dates: start: 20231017, end: 20231227
  11. VINCRISTINE [Suspect]
     Active Substance: VINCRISTINE
     Dosage: 1 MG, CYCLICAL, 2ND CYCLE ON 13/07/2023 +1 MILLIGRAMS (1MG/M2) UNTIL COMPLETING 5 CYCLES
     Route: 042
     Dates: start: 20230713, end: 20230921
  12. VINCRISTINE [Suspect]
     Active Substance: VINCRISTINE
     Dosage: 2 MG, CYCLICAL, 1ST CYCLE 15/06/2023 +1 2MILLIGRAMS (1.16 MG/M2) NEUTROPENIA AND DETERIORATION OF RE
     Route: 042
     Dates: start: 20230615, end: 20230615

REACTIONS (2)
  - Febrile neutropenia [Recovered/Resolved]
  - Diarrhoea [Recovered/Resolved]

NARRATIVE: CASE EVENT DATE: 20240217
